FAERS Safety Report 7038276-7 (Version None)
Quarter: 2010Q4

REPORT INFORMATION
  Report Type: 
  Country: None (occurrence: None)
  Receive Date: 20101011
  Receipt Date: 20100111
  Transmission Date: 20110411
  Serious: Yes (Other)
  Sender: FDA-Public Use
  Company Number: US-PFIZER INC-2009281537

PATIENT
  Sex: Male
  Weight: 73 kg

DRUGS (9)
  1. NEURONTIN [Suspect]
     Indication: TREMOR
     Dosage: 600 MG Q AM, 600 MG Q PM, UNKNOWN
     Dates: start: 20081101
  2. NEURONTIN [Suspect]
     Dosage: 600 MG, Q AM, 300 MG DURING LUNCH, 600 MG Q PM, UNKNOWN
     Dates: end: 20081101
  3. INDERAL LA [Suspect]
     Dosage: 240 MG, UNK
  4. PRIMIDONE [Suspect]
     Indication: TREMOR
     Dosage: 250 MG, 2X/DAY
     Route: 048
     Dates: start: 20081101
  5. PRIMIDONE [Suspect]
     Dosage: 250 MG, 3X/DAY
     Route: 048
     Dates: start: 20080801, end: 20081101
  6. METFORMIN [Concomitant]
     Dosage: UNK
  7. HYDROCHLOROTHIAZIDE [Concomitant]
     Dosage: UNK
  8. METHOTREXATE [Concomitant]
     Dosage: UNK
  9. ETANERCEPT [Concomitant]
     Dosage: 50 MG, UNK

REACTIONS (5)
  - BRADYCARDIA [None]
  - DRUG INEFFECTIVE [None]
  - FEELING ABNORMAL [None]
  - SOMNOLENCE [None]
  - TREMOR [None]
